FAERS Safety Report 23430480 (Version 1)
Quarter: 2024Q1

REPORT INFORMATION
  Report Type: Spontaneous
  Country: IT (occurrence: None)
  Receive Date: 20240123
  Receipt Date: 20240123
  Transmission Date: 20240410
  Serious: Yes (Other)
  Sender: FDA-Public Use
  Company Number: IT-NATCOUSA-2024-NATCOUSA-000186

PATIENT
  Age: 78 Year
  Sex: Male

DRUGS (3)
  1. IMATINIB [Suspect]
     Active Substance: IMATINIB
     Indication: Gastrointestinal stromal tumour
     Route: 065
     Dates: start: 202208
  2. BOSUTINIB [Suspect]
     Active Substance: BOSUTINIB
     Indication: Myeloproliferative neoplasm
  3. BOSUTINIB [Suspect]
     Active Substance: BOSUTINIB
     Indication: Gastrointestinal stromal tumour

REACTIONS (1)
  - Tumour pseudoprogression [Recovered/Resolved]
